FAERS Safety Report 26153936 (Version 1)
Quarter: 2025Q4

REPORT INFORMATION
  Report Type: Spontaneous
  Country: US (occurrence: US)
  Receive Date: 20251215
  Receipt Date: 20251215
  Transmission Date: 20260118
  Serious: No
  Sender: ROCHE
  Company Number: US-CHEPLA-2025013737

PATIENT
  Age: 22 Month
  Sex: Male

DRUGS (1)
  1. VALGANCICLOVIR [Suspect]
     Active Substance: VALGANCICLOVIR
     Indication: Gastric mucosal hypertrophy

REACTIONS (2)
  - Off label use [Unknown]
  - No adverse event [Unknown]
